FAERS Safety Report 5562943-5 (Version None)
Quarter: 2007Q4

REPORT INFORMATION
  Report Type: 
  Country: None (occurrence: None)
  Receive Date: 20071217
  Receipt Date: 20071207
  Transmission Date: 20080405
  Serious: Yes (Hospitalization)
  Sender: FDA-Public Use
  Company Number: IT-BAYER-200717874GPV

PATIENT
  Age: 80 Year
  Sex: Female

DRUGS (4)
  1. ASPIRIN [Suspect]
     Indication: ATHEROSCLEROSIS PROPHYLAXIS
     Dosage: TOTAL DAILY DOSE: 100 MG  UNIT DOSE: 100 MG
     Route: 048
     Dates: start: 20070921, end: 20071022
  2. TRIATEC HCT (RAMIPRIL 5 MG + HYDROCHLOROTHIAZIDE 25 MG) [Concomitant]
     Indication: DRUG USE FOR UNKNOWN INDICATION
     Dosage: UNIT DOSE: 30 MG
     Route: 048
     Dates: start: 20060101, end: 20071120
  3. GLICONORM (GLIBENCLAMIDE 5 MG + METFORMIN 500 MG) [Concomitant]
     Indication: DRUG USE FOR UNKNOWN INDICATION
     Dosage: TOTAL DAILY DOSE: 1515 MG  UNIT DOSE: 505 MG
     Route: 048
  4. LEVEMIR (INSULIN DETEMIR) [Concomitant]
     Indication: DRUG USE FOR UNKNOWN INDICATION
     Route: 058
     Dates: start: 20070301, end: 20071120

REACTIONS (1)
  - GASTRIC ULCER HAEMORRHAGE [None]
